FAERS Safety Report 20628749 (Version 2)
Quarter: 2022Q1

REPORT INFORMATION
  Report Type: Spontaneous
  Country: US (occurrence: US)
  Receive Date: 20220323
  Receipt Date: 20220329
  Transmission Date: 20220423
  Serious: No
  Sender: FDA-Public Use
  Company Number: US-BAYER-2022A040986

PATIENT
  Age: 59 Year
  Sex: Female

DRUGS (1)
  1. KERENDIA [Suspect]
     Active Substance: FINERENONE
     Indication: Chronic kidney disease
     Dates: start: 20220318, end: 20220318

REACTIONS (3)
  - Swollen tongue [None]
  - Pharyngeal swelling [None]
  - Product taste abnormal [None]

NARRATIVE: CASE EVENT DATE: 20220318
